FAERS Safety Report 5249446-2 (Version None)
Quarter: 2007Q1

REPORT INFORMATION
  Report Type: 
  Country: None (occurrence: None)
  Receive Date: 20070223
  Receipt Date: 20070208
  Transmission Date: 20070707
  Serious: Yes (Other)
  Sender: FDA-Public Use
  Company Number: 153061ISR

PATIENT
  Sex: Female

DRUGS (1)
  1. COPAXONE [Suspect]
     Indication: MULTIPLE SCLEROSIS
     Dosage: 20 MG (20 MG, 1 IN 1 D)
     Route: 058

REACTIONS (6)
  - BACK PAIN [None]
  - ERYTHEMA [None]
  - FEELING HOT [None]
  - NECROSIS [None]
  - PYREXIA [None]
  - SKIN DISCOLOURATION [None]
